FAERS Safety Report 6377373-6 (Version None)
Quarter: 2009Q3

REPORT INFORMATION
  Report Type: 
  Country: None (occurrence: None)
  Receive Date: 20090925
  Receipt Date: 20090915
  Transmission Date: 20100115
  Serious: Yes (Life-Threatening, Hospitalization)
  Sender: FDA-Public Use
  Company Number: US-ABBOTT-09P-163-0584258-02

PATIENT
  Sex: Female
  Weight: 57.2 kg

DRUGS (16)
  1. HUMIRA [Suspect]
     Indication: RHEUMATOID ARTHRITIS
     Route: 058
     Dates: start: 20000630, end: 20090703
  2. ALBUTEROL [Concomitant]
     Indication: CHRONIC OBSTRUCTIVE PULMONARY DISEASE
     Route: 055
     Dates: start: 20020123
  3. SEREVENT NOS WITH SPACER [Concomitant]
     Indication: CHRONIC OBSTRUCTIVE PULMONARY DISEASE
     Route: 055
     Dates: start: 20020115
  4. CETIRIZINE HYDROCHLORIDE [Concomitant]
     Indication: NASAL CONGESTION
     Route: 048
     Dates: start: 20011007, end: 20080101
  5. FURAATE MONOHYDRATE [Concomitant]
     Indication: NASAL CONGESTION
     Route: 045
     Dates: start: 20011007, end: 20080228
  6. OXYCODONE HCL [Concomitant]
     Indication: ROTATOR CUFF REPAIR
     Route: 048
     Dates: start: 20040604, end: 20050615
  7. OXYCODONE HCL [Concomitant]
     Indication: PAIN
  8. LORTAB [Concomitant]
     Indication: PAIN
     Route: 048
     Dates: start: 20040412, end: 20051005
  9. LORTAB [Concomitant]
     Indication: ROTATOR CUFF REPAIR
     Route: 048
     Dates: start: 20051206
  10. ACTOS [Concomitant]
     Indication: DIABETES MELLITUS
     Route: 048
     Dates: start: 20011029
  11. NASONEX [Concomitant]
     Indication: NASAL CONGESTION
     Dates: start: 20011007
  12. ACTONEL [Concomitant]
     Indication: OSTEOPOROSIS
     Route: 048
     Dates: start: 20050101
  13. DICAL-D [Concomitant]
     Indication: OSTEOPOROSIS
     Route: 048
     Dates: start: 20050101
  14. RECLAST [Concomitant]
     Indication: DRUG USE FOR UNKNOWN INDICATION
     Route: 042
     Dates: start: 20080101
  15. DEPO-MEDROL [Concomitant]
     Indication: ROTATOR CUFF SYNDROME
     Route: 014
     Dates: start: 20060404, end: 20060404
  16. LIDOCAINE [Concomitant]
     Indication: ROTATOR CUFF SYNDROME
     Route: 014
     Dates: start: 20060404, end: 20060404

REACTIONS (2)
  - SEPSIS [None]
  - THYROIDITIS [None]
